FAERS Safety Report 12574000 (Version 1)
Quarter: 2016Q3

REPORT INFORMATION
  Report Type: Spontaneous
  Country: SE (occurrence: SE)
  Receive Date: 20160720
  Receipt Date: 20160720
  Transmission Date: 20161109
  Serious: Yes (Life-Threatening, Disabling)
  Sender: FDA-Public Use
  Company Number: SE-TEVA-675389ISR

PATIENT
  Age: 50 Year
  Sex: Female

DRUGS (13)
  1. HYDROCHLOROTHIAZIDE. [Suspect]
     Active Substance: HYDROCHLOROTHIAZIDE
  2. LASIX [Suspect]
     Active Substance: FUROSEMIDE
  3. SINEMET [Suspect]
     Active Substance: CARBIDOPA\LEVODOPA
     Route: 048
  4. SERTRALINE [Suspect]
     Active Substance: SERTRALINE HYDROCHLORIDE
     Route: 048
  5. FOLACIN [Suspect]
     Active Substance: FOLIC ACID
  6. OPRYMEA [Suspect]
     Active Substance: PRAMIPEXOLE DIHYDROCHLORIDE
  7. OMEPRAZOL [Suspect]
     Active Substance: OMEPRAZOLE
  8. DEVITRE [Suspect]
     Active Substance: CHOLECALCIFEROL
  9. PRAMIPEXOL [Suspect]
     Active Substance: PRAMIPEXOLE
  10. ORALOVITE [Suspect]
     Active Substance: ASCORBIC ACID\NIACINAMIDE\PYRIDOXINE\RIBOFLAVIN\THIAMINE
     Route: 048
  11. SELEGILINE [Suspect]
     Active Substance: SELEGILINE
     Route: 048
  12. BETOLVIDON [Suspect]
     Active Substance: CYANOCOBALAMIN
  13. DUODOPA [Suspect]
     Active Substance: CARBIDOPA\LEVODOPA

REACTIONS (5)
  - Hypomagnesaemia [Recovered/Resolved]
  - Neuroleptic malignant syndrome [Recovered/Resolved]
  - Rhabdomyolysis [Recovered/Resolved]
  - Toxicity to various agents [Recovered/Resolved]
  - Hyponatraemia [Recovered/Resolved]
